FAERS Safety Report 5793635-5 (Version None)
Quarter: 2008Q2

REPORT INFORMATION
  Report Type: 
  Country: None (occurrence: None)
  Receive Date: 20080627
  Receipt Date: 20080619
  Transmission Date: 20081010
  Serious: Yes (Hospitalization)
  Sender: FDA-Public Use
  Company Number: PHEH2008US03122

PATIENT
  Sex: Female
  Weight: 55.102 kg

DRUGS (1)
  1. RECLAST [Suspect]
     Indication: OSTEOPOROSIS
     Dosage: 5 MG, ONCE YEARLY
     Dates: start: 20080228, end: 20080228

REACTIONS (10)
  - ARTHRALGIA [None]
  - BEDRIDDEN [None]
  - BLOOD OSMOLARITY DECREASED [None]
  - CHILLS [None]
  - FEELING HOT [None]
  - HAND DEFORMITY [None]
  - HEADACHE [None]
  - HYPOCALCAEMIA [None]
  - HYPOKALAEMIA [None]
  - SWELLING [None]
